FAERS Safety Report 25344236 (Version 1)
Quarter: 2025Q2

REPORT INFORMATION
  Report Type: Spontaneous
  Country: US (occurrence: US)
  Receive Date: 20250521
  Receipt Date: 20250521
  Transmission Date: 20250716
  Serious: No
  Sender: SANOFI AVENTIS
  Company Number: US-SANOFI-02424244

PATIENT
  Age: 60 Year
  Sex: Female

DRUGS (17)
  1. DUPIXENT [Suspect]
     Active Substance: DUPILUMAB
     Indication: Chronic obstructive pulmonary disease
     Dosage: 300 MG, QOW
     Route: 058
  2. ASPIRIN [Concomitant]
     Active Substance: ASPIRIN
     Dosage: 81 MG DAILY
  3. ATORVASTATIN [Concomitant]
     Active Substance: ATORVASTATIN
  4. BISOPROLOL [Concomitant]
     Active Substance: BISOPROLOL
  5. BUSPIRONE [Concomitant]
     Active Substance: BUSPIRONE HYDROCHLORIDE
  6. CALCIUM [Concomitant]
     Active Substance: CALCIUM
  7. FAMOTIDINE [Concomitant]
     Active Substance: FAMOTIDINE
  8. JARDIANCE [Concomitant]
     Active Substance: EMPAGLIFLOZIN
  9. LEVOTHYROXINE [Concomitant]
     Active Substance: LEVOTHYROXINE
  10. MONTELUKAST [Concomitant]
     Active Substance: MONTELUKAST
  11. MOTEGRITY [Concomitant]
     Active Substance: PRUCALOPRIDE SUCCINATE
  12. PANTOPRAZOLE [Concomitant]
     Active Substance: PANTOPRAZOLE
  13. POTASSIUM [Concomitant]
     Active Substance: POTASSIUM
  14. QUETIAPINE [Concomitant]
     Active Substance: QUETIAPINE
  15. TRAZODONE [Concomitant]
     Active Substance: TRAZODONE HYDROCHLORIDE
  16. VIIBRYD [Concomitant]
     Active Substance: VILAZODONE HYDROCHLORIDE
  17. VITAMIN B [Concomitant]
     Active Substance: VITAMIN B

REACTIONS (2)
  - Productive cough [Unknown]
  - Dyspnoea [Unknown]
